FAERS Safety Report 4294520-0 (Version None)
Quarter: 2004Q1

REPORT INFORMATION
  Report Type: 
  Country: None (occurrence: None)
  Receive Date: 20040211
  Receipt Date: 20040128
  Transmission Date: 20041129
  Serious: Yes (Disabling)
  Sender: FDA-Public Use
  Company Number: MK200402-0022-1

PATIENT
  Sex: Male

DRUGS (1)
  1. HEXABRIX [Suspect]
     Indication: ARTHROGRAM
     Dosage: INTRA-ARTICULAR
     Route: 014
     Dates: start: 20000101

REACTIONS (1)
  - RHEUMATOID ARTHRITIS [None]
